FAERS Safety Report 13879061 (Version 2)
Quarter: 2017Q3

REPORT INFORMATION
  Report Type: Report from Study
  Country: JP (occurrence: JP)
  Receive Date: 20170817
  Receipt Date: 20170822
  Transmission Date: 20171127
  Serious: Yes (Death, Life-Threatening, Hospitalization)
  Sender: FDA-Public Use
  Company Number: JP-ACTELION-A-CH2017-157969

PATIENT
  Age: 20 Year
  Sex: Male

DRUGS (10)
  1. ARTIST [Concomitant]
     Active Substance: CARVEDILOL
  2. HANP [Concomitant]
     Active Substance: CARPERITIDE
  3. PIMOBENDAN [Concomitant]
     Active Substance: PIMOBENDAN
  4. SPIRONOLACTONE. [Concomitant]
     Active Substance: SPIRONOLACTONE
  5. WARFARIN [Concomitant]
     Active Substance: WARFARIN
  6. TANATRIL [Concomitant]
     Active Substance: IMIDAPRIL
  7. OPSUMIT [Suspect]
     Active Substance: MACITENTAN
     Indication: PULMONARY ARTERIAL HYPERTENSION
     Dosage: 10 MG, QD
     Route: 048
     Dates: start: 20151209, end: 20170219
  8. BAYASPIRIN [Concomitant]
     Active Substance: ASPIRIN
  9. FUROSEMIDE. [Concomitant]
     Active Substance: FUROSEMIDE
  10. BISOPROLOL [Concomitant]
     Active Substance: BISOPROLOL

REACTIONS (23)
  - Pulmonary haemorrhage [Fatal]
  - Transfusion [Unknown]
  - Upper respiratory tract infection [Recovered/Resolved]
  - Univentricular heart [Fatal]
  - Pulmonary artery atresia [Fatal]
  - Oropharyngeal pain [Recovered/Resolved]
  - Cough [Recovering/Resolving]
  - Bronchitis [Recovering/Resolving]
  - Decreased appetite [Recovering/Resolving]
  - C-reactive protein increased [Recovering/Resolving]
  - Hyperparathyroidism primary [Not Recovered/Not Resolved]
  - Haemoptysis [Fatal]
  - Transient ischaemic attack [Recovering/Resolving]
  - Nasal congestion [Recovered/Resolved]
  - Chills [Recovered/Resolved]
  - Pyrexia [Recovered/Resolved]
  - Polycythaemia [Unknown]
  - Oxygen saturation decreased [Fatal]
  - Cardiac failure acute [Fatal]
  - Collateral circulation [Fatal]
  - Pneumonia staphylococcal [Not Recovered/Not Resolved]
  - Muscular weakness [Recovering/Resolving]
  - Headache [Recovered/Resolved]

NARRATIVE: CASE EVENT DATE: 20160411
